FAERS Safety Report 22176529 (Version 1)
Quarter: 2023Q2

REPORT INFORMATION
  Report Type: Spontaneous
  Country: US (occurrence: None)
  Receive Date: 20230404
  Receipt Date: 20230404
  Transmission Date: 20230721
  Serious: No
  Sender: FDA-Public Use
  Company Number: None

PATIENT
  Age: 24 Year
  Sex: 0

DRUGS (16)
  1. DEXTROAMPHET SACCHARAT, AMPHET ASPARTATE, DEXTROAMPHET SULFATE AND AMP [Suspect]
     Active Substance: AMPHETAMINE ASPARTATE\AMPHETAMINE ASPARTATE MONOHYDRATE\AMPHETAMINE SULFATE\DEXTROAMPHETAMINE SACCHA
     Indication: Attention deficit hyperactivity disorder
     Dosage: OTHER FREQUENCY : 1 TUE, 1 FRI, 1 SA;?
     Route: 048
  2. PRIMIDONE [Concomitant]
     Active Substance: PRIMIDONE
  3. NADOLOL [Concomitant]
     Active Substance: NADOLOL
  4. NEXPLANON [Concomitant]
     Active Substance: ETONOGESTREL
  5. HERBALS\TURMERIC [Concomitant]
     Active Substance: HERBALS\TURMERIC
  6. VITAMIN B6 [Concomitant]
     Active Substance: PYRIDOXINE HYDROCHLORIDE
  7. VITAMIN B12 [Concomitant]
     Active Substance: CYANOCOBALAMIN
  8. VITAMIN C [Concomitant]
     Active Substance: ASCORBIC ACID
  9. VITAMIN D [Concomitant]
     Active Substance: VITAMIN D NOS
  10. VITAMIN E [Concomitant]
     Active Substance: .ALPHA.-TOCOPHEROL
  11. ST. JOHN^S WORT [Concomitant]
     Active Substance: ST. JOHN^S WORT
  12. ALOE VERA LEAF [Concomitant]
     Active Substance: ALOE VERA LEAF
  13. GOTU KOLA [Concomitant]
     Active Substance: GOTU KOLA
  14. Korean Panax Ginseng [Concomitant]
  15. MELATONIN [Concomitant]
     Active Substance: MELATONIN
  16. BENADRYL [Concomitant]
     Active Substance: DIPHENHYDRAMINE HYDROCHLORIDE

REACTIONS (6)
  - Product availability issue [None]
  - Therapy interrupted [None]
  - Product substitution issue [None]
  - Impaired work ability [None]
  - Disturbance in attention [None]
  - Loss of personal independence in daily activities [None]
